FAERS Safety Report 4621296-7 (Version None)
Quarter: 2005Q1

REPORT INFORMATION
  Report Type: 
  Country: None (occurrence: None)
  Receive Date: 20050329
  Receipt Date: 20050314
  Transmission Date: 20050727
  Serious: Yes (Other)
  Sender: FDA-Public Use
  Company Number: GB-BOEHRINGER INGELHEIM PHARMACEUTICALS, INC.-2005-UK-00443UK

PATIENT
  Age: 84 Year
  Sex: Male

DRUGS (8)
  1. DIPYRIDAMOLE [Suspect]
     Indication: MYOCARDIAL INFARCTION
     Dosage: 100MG QDS
     Route: 048
     Dates: start: 20050212
  2. CLOPIDOGREL [Suspect]
     Indication: MYOCARDIAL INFARCTION
     Route: 048
     Dates: start: 20050212
  3. ASPIRIN [Suspect]
     Indication: MYOCARDIAL INFARCTION
     Route: 048
     Dates: start: 20050212
  4. PREDNISOLONE [Concomitant]
     Indication: VASCULITIS
     Route: 048
  5. PREDNISOLONE [Concomitant]
     Indication: SYSTEMIC LUPUS ERYTHEMATOSUS
  6. ATENOLOL [Concomitant]
     Indication: MYOCARDIAL INFARCTION
     Route: 048
     Dates: start: 20050212
  7. SIMVASTATIN [Concomitant]
     Indication: MYOCARDIAL INFARCTION
     Route: 048
     Dates: start: 20050212
  8. RANITIDINE [Concomitant]
     Route: 048

REACTIONS (1)
  - DUODENAL ULCER HAEMORRHAGE [None]
